FAERS Safety Report 7814072-5 (Version None)
Quarter: 2011Q4

REPORT INFORMATION
  Report Type: 
  Country: None (occurrence: None)
  Receive Date: 20111014
  Receipt Date: 20111011
  Transmission Date: 20120403
  Serious: Yes (Death, Life-Threatening)
  Sender: FDA-Public Use
  Company Number: US-JNJFOC-20110909397

PATIENT
  Age: 51 Year
  Sex: Male

DRUGS (1)
  1. LEVOFLOXACIN [Suspect]
     Indication: PNEUMONIA
     Route: 065

REACTIONS (4)
  - MULTI-ORGAN FAILURE [None]
  - STAPHYLOCOCCUS TEST POSITIVE [None]
  - RESPIRATORY FAILURE [None]
  - TRACHEOBRONCHITIS [None]
